FAERS Safety Report 8239925-8 (Version None)
Quarter: 2012Q1

REPORT INFORMATION
  Report Type: 
  Country: None (occurrence: None)
  Receive Date: 20120327
  Receipt Date: 20120327
  Transmission Date: 20120608
  Serious: Yes (Hospitalization)
  Sender: FDA-Public Use
  Company Number: None

PATIENT
  Age: 87 Year
  Sex: Male
  Weight: 97.7 kg

DRUGS (2)
  1. NAFCILLIN [Suspect]
     Indication: WOUND INFECTION
     Dosage: 2 GM ONCE IV
     Route: 042
     Dates: start: 20120226, end: 20120229
  2. CEFAZOLIN [Suspect]
     Indication: WOUND INFECTION
     Dosage: 1 GM BID IV
     Route: 042
     Dates: start: 20120307, end: 20120309

REACTIONS (2)
  - RENAL FAILURE ACUTE [None]
  - RENAL TUBULAR NECROSIS [None]
